FAERS Safety Report 7933809-8 (Version None)
Quarter: 2011Q4

REPORT INFORMATION
  Report Type: 
  Country: None (occurrence: None)
  Receive Date: 20111122
  Receipt Date: 20111114
  Transmission Date: 20120403
  Serious: Yes (Other)
  Sender: FDA-Public Use
  Company Number: PHEH2011US009517

PATIENT
  Sex: Female

DRUGS (8)
  1. ADDERALL 5 [Concomitant]
     Dosage: UNK UKN, UNK
  2. VITAMIN D [Concomitant]
     Dosage: UNK UKN, UNK
  3. VITAMIN B NOS [Concomitant]
     Dosage: UNK UKN, UNK
  4. GILENYA [Suspect]
     Indication: MULTIPLE SCLEROSIS
     Dosage: 0.5 MG, QD
     Route: 048
     Dates: start: 20110301
  5. M.V.I. [Concomitant]
     Dosage: UNK UKN, UNK
  6. NORCO [Concomitant]
     Dosage: UNK UKN, UNK
  7. CRESTOR [Concomitant]
     Dosage: UNK UKN, UNK
  8. VALIUM [Concomitant]
     Dosage: UNK UKN, UNK

REACTIONS (5)
  - INFECTION [None]
  - MALAISE [None]
  - CELLULITIS [None]
  - LYME DISEASE [None]
  - HEPATIC ENZYME INCREASED [None]
